FAERS Safety Report 5663077-1 (Version None)
Quarter: 2008Q1

REPORT INFORMATION
  Report Type: 
  Country: None (occurrence: None)
  Receive Date: 20080313
  Receipt Date: 20080221
  Transmission Date: 20080703
  Serious: Yes (Life-Threatening, Disabling, Congenital Anomaly)
  Sender: FDA-Public Use
  Company Number: A0681867A

PATIENT
  Sex: Male
  Weight: 2.8 kg

DRUGS (4)
  1. PAXIL [Suspect]
     Indication: ANXIETY
     Dosage: 60MG AT NIGHT
     Dates: end: 20030417
  2. PAROXETINE HCL [Suspect]
     Indication: ANXIETY
     Route: 048
     Dates: start: 20030417, end: 20040101
  3. INSULIN [Concomitant]
     Indication: GESTATIONAL DIABETES
  4. VITAMIN TAB [Concomitant]

REACTIONS (13)
  - ASTHMA [None]
  - BRONCHOPULMONARY DISEASE [None]
  - DEAFNESS [None]
  - DRUG EXPOSURE DURING PREGNANCY [None]
  - EPILEPSY [None]
  - GASTROOESOPHAGEAL REFLUX DISEASE [None]
  - HERNIA [None]
  - HYPOTHYROIDISM [None]
  - LARYNGEAL WEB [None]
  - LUNG DISORDER [None]
  - PATENT DUCTUS ARTERIOSUS [None]
  - VENTRICULAR SEPTAL DEFECT [None]
  - VISUAL DISTURBANCE [None]
